FAERS Safety Report 4753405-3 (Version None)
Quarter: 2005Q3

REPORT INFORMATION
  Report Type: 
  Country: None (occurrence: None)
  Receive Date: 20050824
  Receipt Date: 20050810
  Transmission Date: 20060218
  Serious: Yes (Other)
  Sender: FDA-Public Use
  Company Number: USA0508105168

PATIENT
  Age: 55 Year
  Sex: Female

DRUGS (4)
  1. CYMBALTA [Suspect]
     Indication: DEPRESSION
     Dosage: 60 MG DAY
     Dates: start: 20050101
  2. NEURONTIN [Concomitant]
  3. TRAZADONE [Concomitant]
  4. FLEXERIL [Concomitant]

REACTIONS (15)
  - ABDOMINAL DISTENSION [None]
  - DRUG DOSE OMISSION [None]
  - DRUG INEFFECTIVE [None]
  - ECONOMIC PROBLEM [None]
  - FAT TISSUE INCREASED [None]
  - FATIGUE [None]
  - GASTROOESOPHAGEAL REFLUX DISEASE [None]
  - HEPATIC LESION [None]
  - LIVER TENDERNESS [None]
  - MICTURITION URGENCY [None]
  - NAUSEA [None]
  - OVARIAN DISORDER [None]
  - URINARY INCONTINENCE [None]
  - VOMITING [None]
  - WEIGHT INCREASED [None]
